FAERS Safety Report 5156340-4 (Version None)
Quarter: 2006Q4

REPORT INFORMATION
  Report Type: 
  Country: None (occurrence: None)
  Receive Date: 20061122
  Receipt Date: 20061116
  Transmission Date: 20070319
  Serious: Yes (Other)
  Sender: FDA-Public Use
  Company Number: JP-JPN-A200604938

PATIENT
  Age: 73 Year
  Sex: Female

DRUGS (3)
  1. ZANTAC [Suspect]
     Indication: PREMEDICATION
     Dosage: 50MG PER DAY
     Dates: start: 20061115, end: 20061115
  2. DECADRON [Concomitant]
     Route: 065
  3. PACLITAXEL [Concomitant]

REACTIONS (3)
  - ANAPHYLACTOID REACTION [None]
  - CHOKING SENSATION [None]
  - HOT FLUSH [None]
